FAERS Safety Report 7330808-4 (Version None)
Quarter: 2011Q1

REPORT INFORMATION
  Report Type: 
  Country: None (occurrence: None)
  Receive Date: 20110304
  Receipt Date: 20110228
  Transmission Date: 20110831
  Serious: Yes (Other)
  Sender: FDA-Public Use
  Company Number: US-PFIZER INC-2011044094

PATIENT
  Sex: Female
  Weight: 57.143 kg

DRUGS (2)
  1. LYRICA [Suspect]
     Indication: SPINAL DISORDER
     Dosage: 75 MG, 2X/DAY
     Route: 048
     Dates: start: 20110112
  2. LORTAB [Concomitant]
     Indication: SPINAL DISORDER
     Dosage: 10/500MG, 1X/DAY
     Route: 048
     Dates: start: 20110110

REACTIONS (3)
  - DISORIENTATION [None]
  - DYSPNOEA [None]
  - VISION BLURRED [None]
